FAERS Safety Report 5592440-2 (Version None)
Quarter: 2008Q1

REPORT INFORMATION
  Report Type: 
  Country: None (occurrence: None)
  Receive Date: 20080111
  Receipt Date: 20080108
  Transmission Date: 20080703
  Serious: Yes (Death)
  Sender: FDA-Public Use
  Company Number: 2008-00043

PATIENT
  Sex: Male

DRUGS (1)
  1. VELCADE [Suspect]
     Indication: MULTIPLE MYELOMA
     Dosage: INTRAVENOUS
     Route: 042
     Dates: start: 20071005

REACTIONS (4)
  - DIARRHOEA [None]
  - ECZEMA [None]
  - HYPERTHERMIA [None]
  - HYPOAESTHESIA [None]
